FAERS Safety Report 23420014 (Version 2)
Quarter: 2024Q1

REPORT INFORMATION
  Report Type: Spontaneous
  Country: DE (occurrence: None)
  Receive Date: 20240119
  Receipt Date: 20240222
  Transmission Date: 20240410
  Serious: Yes (Hospitalization)
  Sender: FDA-Public Use
  Company Number: DE-ROCHE-3493763

PATIENT
  Age: 50 Year
  Sex: Male

DRUGS (2)
  1. MABTHERA [Suspect]
     Active Substance: RITUXIMAB
     Indication: Scleroderma
     Route: 065
  2. TRACLEER [Suspect]
     Active Substance: BOSENTAN
     Indication: Product used for unknown indication
     Route: 065

REACTIONS (3)
  - Atrioventricular block complete [Unknown]
  - B-lymphocyte count decreased [Unknown]
  - Off label use [Unknown]
